FAERS Safety Report 16990404 (Version 1)
Quarter: 2019Q4

REPORT INFORMATION
  Report Type: Spontaneous
  Country: US (occurrence: US)
  Receive Date: 20191104
  Receipt Date: 20191104
  Transmission Date: 20200122
  Serious: No
  Sender: FDA-Public Use
  Company Number: US-PFIZER INC-2019473560

PATIENT
  Age: 52 Year
  Sex: Female
  Weight: 87.75 kg

DRUGS (1)
  1. NORVASC [Suspect]
     Active Substance: AMLODIPINE BESYLATE
     Dosage: UNK
     Dates: end: 20190720

REACTIONS (2)
  - Asthenia [Recovering/Resolving]
  - Hypotension [Recovered/Resolved]
